FAERS Safety Report 24177153 (Version 1)
Quarter: 2024Q3

REPORT INFORMATION
  Report Type: Spontaneous
  Country: US (occurrence: None)
  Receive Date: 20240806
  Receipt Date: 20240806
  Transmission Date: 20241016
  Serious: No
  Sender: UNICHEM
  Company Number: US-ARIS GLOBAL-UCM202403-000303

PATIENT
  Age: 50 Year
  Sex: Female

DRUGS (3)
  1. CYCLOBENZAPRINE HYDROCHLORIDE [Suspect]
     Active Substance: CYCLOBENZAPRINE HYDROCHLORIDE
     Indication: Muscle relaxant therapy
     Dosage: ONE/TWO TABLETS
     Dates: start: 20230811, end: 202402
  2. OXYCODONE [Concomitant]
     Active Substance: OXYCODONE
     Indication: Back pain
     Dates: end: 20240301
  3. XTAMPZA [Concomitant]
     Active Substance: OXYCODONE
     Indication: Back pain
     Dosage: UNKNOWN

REACTIONS (4)
  - Influenza [Unknown]
  - Restless legs syndrome [Unknown]
  - Withdrawal syndrome [Unknown]
  - Drug screen false positive [Recovered/Resolved]
